FAERS Safety Report 6704463-8 (Version None)
Quarter: 2010Q2

REPORT INFORMATION
  Report Type: 
  Country: None (occurrence: None)
  Receive Date: 20100430
  Receipt Date: 20100421
  Transmission Date: 20101027
  Serious: Yes (Hospitalization)
  Sender: FDA-Public Use
  Company Number: GXKR2010PT04508

PATIENT
  Age: 60 Year
  Sex: Female

DRUGS (3)
  1. ACETYLSALICYLIC ACID SRT [Suspect]
     Dosage: 100 MG/DAY
  2. ETORICOXIB [Interacting]
     Indication: BACK PAIN
     Dosage: 60 MG/DAY
  3. LISINOPRIL [Concomitant]
     Dosage: 20 MG/DAY

REACTIONS (7)
  - DRUG INTERACTION [None]
  - DUODENAL ULCER [None]
  - HAEMATOCHEZIA [None]
  - HELICOBACTER INFECTION [None]
  - MELAENA [None]
  - PALLOR [None]
  - UPPER GASTROINTESTINAL HAEMORRHAGE [None]
